FAERS Safety Report 24120697 (Version 1)
Quarter: 2024Q3

REPORT INFORMATION
  Report Type: Spontaneous
  Country: US (occurrence: None)
  Receive Date: 20240718
  Receipt Date: 20240718
  Transmission Date: 20241016
  Serious: No
  Sender: Public
  Company Number: None

PATIENT
  Age: 73 Year
  Sex: Female
  Weight: 60.3 kg

DRUGS (13)
  1. LAGEVRIO [Suspect]
     Active Substance: MOLNUPIRAVIR
     Indication: COVID-19
     Dates: start: 20240711, end: 20240715
  2. LEVOTHYROXINE [Concomitant]
     Active Substance: LEVOTHYROXINE\LEVOTHYROXINE SODIUM
  3. metoprolol succinate ER [Concomitant]
  4. METOPROLOL TARTRATE [Concomitant]
     Active Substance: METOPROLOL TARTRATE
  5. KETOCONAZOLE [Concomitant]
     Active Substance: KETOCONAZOLE
  6. TRAZODONE [Concomitant]
     Active Substance: TRAZODONE HYDROCHLORIDE
  7. MAGNESIUM [Concomitant]
     Active Substance: MAGNESIUM
  8. Collagen-Boron-Hyaluronic Acid [Concomitant]
  9. Align Extra Strength [Concomitant]
  10. CALCIUM CARBONATE\VITAMIN D [Concomitant]
     Active Substance: CALCIUM CARBONATE\VITAMIN D
  11. Hair, Skin, and Nails [Concomitant]
  12. MELATONIN [Concomitant]
     Active Substance: MELATONIN
  13. Healthy Fiber partially hydrolyzed guar gum [Concomitant]

REACTIONS (1)
  - Agitation [None]

NARRATIVE: CASE EVENT DATE: 20240715
